FAERS Safety Report 11192882 (Version 1)
Quarter: 2015Q2

REPORT INFORMATION
  Report Type: Spontaneous
  Country: US (occurrence: None)
  Receive Date: 20150612
  Receipt Date: 20150612
  Transmission Date: 20150821
  Serious: Yes (Hospitalization)
  Sender: FDA-Public Use
  Company Number: US-H14001-15-00910

PATIENT
  Age: 50 Year
  Sex: Female

DRUGS (2)
  1. DEPOT LEUPROLIDE ACETATE [Concomitant]
  2. PROGESTERONE. [Suspect]
     Active Substance: PROGESTERONE
     Indication: RASH

REACTIONS (2)
  - Condition aggravated [None]
  - Autoimmune dermatitis [None]
